FAERS Safety Report 10036968 (Version 1)
Quarter: 2014Q1

REPORT INFORMATION
  Report Type: Spontaneous
  Country: US (occurrence: US)
  Receive Date: 20140326
  Receipt Date: 20140326
  Transmission Date: 20141002
  Serious: No
  Sender: FDA-Public Use
  Company Number: US-BIOGENIDEC-2014BI026152

PATIENT
  Sex: Female

DRUGS (17)
  1. TECFIDERA [Suspect]
     Indication: PRODUCT USED FOR UNKNOWN INDICATION
  2. TYSABRI [Concomitant]
     Indication: MULTIPLE SCLEROSIS
     Route: 042
     Dates: start: 20090527, end: 20111013
  3. TYSABRI [Concomitant]
     Indication: MULTIPLE SCLEROSIS
     Route: 042
     Dates: start: 20120912, end: 20130725
  4. BACLOFEN [Concomitant]
     Dates: start: 20130326
  5. DULOXETINE [Concomitant]
     Route: 048
     Dates: start: 20130326
  6. FLUOXETINE HCL [Concomitant]
     Route: 048
     Dates: start: 20130326
  7. LISINOPRIL-HYDROCHLORTHIAZIDE [Concomitant]
  8. OMEPRAZOLE [Concomitant]
     Dates: start: 20140310
  9. PREDNISONE [Concomitant]
     Route: 048
  10. PREDNISONE [Concomitant]
     Route: 048
  11. PREDNISONE [Concomitant]
     Route: 048
  12. PREDNISONE [Concomitant]
     Route: 048
  13. PREDNISONE [Concomitant]
     Route: 048
  14. TEMAZEPAM [Concomitant]
     Route: 048
     Dates: start: 20140310
  15. TYLENOL [Concomitant]
     Indication: ARTHRALGIA
     Route: 048
  16. TYLENOL [Concomitant]
     Indication: ARTHRALGIA
     Route: 048
  17. PENICILLIN [Concomitant]

REACTIONS (2)
  - Increased tendency to bruise [Unknown]
  - Multiple sclerosis relapse [Unknown]
